FAERS Safety Report 9804999 (Version 4)
Quarter: 2014Q1

REPORT INFORMATION
  Report Type: Report from Study
  Country: FR (occurrence: FR)
  Receive Date: 20140109
  Receipt Date: 20140121
  Transmission Date: 20141002
  Serious: Yes (Hospitalization)
  Sender: FDA-Public Use
  Company Number: FR-ROCHE-1328995

PATIENT
  Age: 50 Year
  Sex: Female
  Weight: 86 kg

DRUGS (6)
  1. RITUXIMAB [Suspect]
     Indication: DIFFUSE LARGE B-CELL LYMPHOMA
     Dosage: DATE OF LAST ADMINISTRATION BEFORE SAE : 05/DEC/2013 (745 MG) AND 23/DEC/2013 (715 MG).
     Route: 065
     Dates: start: 20131031
  2. BLEOMYCIN SULFATE [Concomitant]
     Route: 065
     Dates: start: 20131031, end: 20131227
  3. DOXORUBICIN [Concomitant]
     Route: 065
     Dates: start: 20131031, end: 20131227
  4. CYCLOPHOSPHAMIDE [Concomitant]
     Route: 065
     Dates: start: 20131031, end: 20131227
  5. VINDESINE [Concomitant]
     Route: 065
     Dates: start: 20131031, end: 20131227
  6. PREDNISONE [Concomitant]
     Route: 065
     Dates: start: 20131031, end: 20131227

REACTIONS (2)
  - Mucosal inflammation [Recovered/Resolved]
  - Escherichia urinary tract infection [Recovered/Resolved]
